FAERS Safety Report 6590156-7 (Version None)
Quarter: 2010Q1

REPORT INFORMATION
  Report Type: 
  Country: None (occurrence: None)
  Receive Date: 20100219
  Receipt Date: 20100212
  Transmission Date: 20100710
  Serious: Yes (Hospitalization, Other)
  Sender: FDA-Public Use
  Company Number: JP-BAYER-200812278BYL

PATIENT
  Age: 71 Year
  Sex: Male
  Weight: 42 kg

DRUGS (49)
  1. NEXAVAR [Suspect]
     Indication: RENAL CELL CARCINOMA
     Dosage: TOTAL DAILY DOSE: 800 MG  UNIT DOSE: 200 MG
     Route: 048
     Dates: start: 20080527, end: 20080828
  2. NEXAVAR [Suspect]
     Dosage: TOTAL DAILY DOSE: 400 MG  UNIT DOSE: 200 MG
     Route: 048
     Dates: start: 20080829, end: 20081012
  3. NEXAVAR [Suspect]
     Dosage: UNIT DOSE: 200 MG
     Route: 048
     Dates: start: 20081016, end: 20081016
  4. NEXAVAR [Suspect]
     Dosage: UNIT DOSE: 200 MG
     Route: 048
     Dates: start: 20081017, end: 20081023
  5. NEXAVAR [Suspect]
     Dosage: UNIT DOSE: 200 MG
     Route: 048
     Dates: start: 20090210, end: 20090219
  6. NEXAVAR [Suspect]
     Dosage: TOTAL DAILY DOSE: 400 MG  UNIT DOSE: 200 MG
     Route: 048
     Dates: start: 20090520, end: 20090901
  7. NEXAVAR [Suspect]
     Dosage: UNIT DOSE: 200 MG
     Route: 048
     Dates: start: 20090519, end: 20090519
  8. NEXAVAR [Suspect]
     Dosage: UNIT DOSE: 200 MG
     Route: 048
     Dates: start: 20081206, end: 20090120
  9. NEXAVAR [Suspect]
     Dosage: UNIT DOSE: 200 MG
     Route: 048
     Dates: start: 20081122, end: 20081122
  10. NEXAVAR [Suspect]
     Dosage: UNIT DOSE: 200 MG
     Route: 048
     Dates: start: 20081024, end: 20081113
  11. NEXAVAR [Suspect]
     Dosage: UNIT DOSE: 200 MG
     Route: 048
     Dates: start: 20081123, end: 20081124
  12. NEXAVAR [Suspect]
     Dosage: UNIT DOSE: 200 MG
     Route: 048
     Dates: start: 20090220, end: 20090312
  13. NEXAVAR [Suspect]
     Dosage: UNIT DOSE: 200 MG
     Route: 048
     Dates: end: 20091105
  14. NEXAVAR [Suspect]
     Dosage: UNIT DOSE: 200 MG
     Route: 048
     Dates: start: 20090320, end: 20090429
  15. NEXAVAR [Suspect]
     Dosage: UNIT DOSE: 200 MG
     Route: 048
     Dates: start: 20081127, end: 20081202
  16. OXYCONTIN [Concomitant]
     Dosage: TOTAL DAILY DOSE: 10 MG
     Route: 048
     Dates: start: 20080529
  17. OXYCONTIN [Concomitant]
     Dosage: TOTAL DAILY DOSE: 5 MG
     Route: 048
     Dates: start: 20090324
  18. MOHRUS TAPE [Concomitant]
     Route: 062
     Dates: start: 20080501, end: 20080501
  19. MOHRUS TAPE [Concomitant]
     Route: 062
     Dates: start: 20080529, end: 20080529
  20. MILTAX [Concomitant]
     Route: 062
     Dates: start: 20080526, end: 20080526
  21. MILTAX [Concomitant]
     Route: 062
     Dates: start: 20080528, end: 20080528
  22. GARASONE [Concomitant]
     Dosage: TOTAL DAILY DOSE: 1 DF
     Route: 062
     Dates: start: 20080526, end: 20080526
  23. GARASONE [Concomitant]
     Dosage: TOTAL DAILY DOSE: 1 DF
     Route: 062
     Dates: start: 20080528, end: 20080528
  24. MAGMITT [Concomitant]
     Dosage: TOTAL DAILY DOSE: 990 MG
     Route: 048
     Dates: start: 20080606, end: 20080615
  25. MAGMITT [Concomitant]
     Dosage: TOTAL DAILY DOSE: 990 MG
     Route: 048
     Dates: start: 20080527, end: 20080602
  26. MAGMITT [Concomitant]
     Dosage: TOTAL DAILY DOSE: 990 MG
     Route: 048
     Dates: start: 20080620, end: 20080828
  27. LAXOBERON [Concomitant]
     Indication: CONSTIPATION
     Dosage: 20-30ML/DAY
     Route: 048
     Dates: start: 20080527
  28. TELEMINSOFT [Concomitant]
     Indication: CONSTIPATION
     Route: 054
     Dates: start: 20080527, end: 20080527
  29. OXINORM [Concomitant]
     Indication: PAIN
     Route: 048
     Dates: start: 20080528, end: 20080528
  30. OXINORM [Concomitant]
     Route: 048
     Dates: start: 20080526
  31. HARNAL D [Concomitant]
     Dosage: TOTAL DAILY DOSE: 0.2 MG
     Route: 048
     Dates: start: 20080620
  32. HARNAL D [Concomitant]
     Route: 048
     Dates: start: 20080526
  33. HARNAL D [Concomitant]
     Dosage: TOTAL DAILY DOSE: 0.2 MG
     Route: 048
     Dates: start: 20080528, end: 20080601
  34. CELESTAMINE TAB [Concomitant]
     Dosage: TOTAL DAILY DOSE: 1 DF
     Route: 048
     Dates: start: 20080531, end: 20080815
  35. MUCODYNE [Concomitant]
     Dosage: WITHIN 30 MINUTES AFTER BREAKFAST AND DINNER
     Route: 048
     Dates: start: 20080531
  36. THEOLONG [Concomitant]
     Dosage: TOTAL DAILY DOSE: 200 MG
     Route: 048
     Dates: start: 20080531
  37. INTAL [Concomitant]
     Dosage: TOTAL DAILY DOSE: 2 DF
     Route: 055
     Dates: start: 20080531, end: 20080716
  38. MEPTIN [Concomitant]
     Dosage: TOTAL DAILY DOSE: 2 DF
     Route: 055
     Dates: start: 20080531, end: 20080716
  39. SPIRIVA [Concomitant]
     Dosage: TOTAL DAILY DOSE: 1 DF
     Route: 055
     Dates: start: 20080620, end: 20080620
  40. SPIRIVA [Concomitant]
     Dosage: TOTAL DAILY DOSE: 1 DF
     Route: 055
     Dates: start: 20080926, end: 20080926
  41. SPIRIVA [Concomitant]
     Dosage: TOTAL DAILY DOSE: 1 DF
     Route: 055
     Dates: start: 20081003, end: 20081003
  42. FLUTIDE:DISKUS [Concomitant]
     Dosage: TOTAL DAILY DOSE: 2 DF
     Route: 055
     Dates: start: 20080808, end: 20080808
  43. FLUTIDE:DISKUS [Concomitant]
     Dosage: TOTAL DAILY DOSE: 2 DF
     Route: 055
     Dates: start: 20080926, end: 20080926
  44. FLUTIDE:DISKUS [Concomitant]
     Dosage: TOTAL DAILY DOSE: 2 DF
     Route: 055
     Dates: start: 20081003, end: 20081003
  45. SEREVENT [Concomitant]
     Dosage: TOTAL DAILY DOSE: 2 DF
     Route: 055
     Dates: start: 20080808, end: 20080808
  46. SEREVENT [Concomitant]
     Dosage: TOTAL DAILY DOSE: 2 DF
     Route: 055
     Dates: start: 20080926, end: 20080926
  47. SEREVENT [Concomitant]
     Dosage: TOTAL DAILY DOSE: 2 DF
     Route: 055
     Dates: start: 20081003, end: 20081003
  48. NIFLAN [Concomitant]
     Dosage: TOTAL DAILY DOSE: 4 DF
     Route: 031
     Dates: start: 20080801, end: 20080801
  49. NIFLAN [Concomitant]
     Dosage: TOTAL DAILY DOSE: 4 DF
     Route: 031
     Dates: start: 20080829, end: 20080829

REACTIONS (17)
  - ALOPECIA [None]
  - BLOOD POTASSIUM INCREASED [None]
  - BLOOD PRESSURE INCREASED [None]
  - CHRONIC OBSTRUCTIVE PULMONARY DISEASE [None]
  - DECREASED APPETITE [None]
  - DIARRHOEA [None]
  - DYSPNOEA [None]
  - EMPHYSEMA [None]
  - GASTRIC CANCER [None]
  - HAEMATOCHEZIA [None]
  - HYPERTENSION [None]
  - LIPASE INCREASED [None]
  - NEPHROTIC SYNDROME [None]
  - PALMAR-PLANTAR ERYTHRODYSAESTHESIA SYNDROME [None]
  - PANCREATIC ENZYMES ABNORMAL [None]
  - UPPER RESPIRATORY TRACT INFECTION [None]
  - UPPER RESPIRATORY TRACT INFLAMMATION [None]
